FAERS Safety Report 5595458-9 (Version None)
Quarter: 2008Q1

REPORT INFORMATION
  Report Type: 
  Country: None (occurrence: None)
  Receive Date: 20080116
  Receipt Date: 20080116
  Transmission Date: 20080703
  Serious: Yes (Other)
  Sender: FDA-Public Use
  Company Number: None

PATIENT
  Age: 73 Year
  Sex: Female
  Weight: 87.9978 kg

DRUGS (3)
  1. NYSTATIN AND TRIAMCINOLONE ACETONIDE [Suspect]
     Indication: FUNGAL INFECTION
     Dosage: SMALL AS NEEDED TOP
     Route: 061
     Dates: start: 20050110, end: 20061115
  2. DESONIDE [Suspect]
     Indication: LICHEN SCLEROSUS
     Dosage: SMALL AS NEEDED TOP
     Route: 061
     Dates: start: 20060920, end: 20071231
  3. CLOBESTASOL PROPIONATE [Suspect]
     Indication: RASH
     Dosage: SMALL AS NEEDED TOP
     Route: 061

REACTIONS (2)
  - CIRCUMSTANCE OR INFORMATION CAPABLE OF LEADING TO MEDICATION ERROR [None]
  - MEDICATION ERROR [None]
